FAERS Safety Report 8977861 (Version 2)
Quarter: 2012Q4

REPORT INFORMATION
  Report Type: 
  Country: US (occurrence: US)
  Receive Date: 20121220
  Receipt Date: 20121224
  Transmission Date: 20130627
  Serious: Yes (Other)
  Sender: FDA-Public Use
  Company Number: PHEH2012US024967

PATIENT
  Age: 36 Year
  Sex: Female

DRUGS (3)
  1. GILENYA [Suspect]
     Indication: MULTIPLE SCLEROSIS
     Dosage: 0.5 mg, QD
     Route: 048
     Dates: start: 201110
  2. EFFEXOR [Concomitant]
     Indication: MULTIPLE SCLEROSIS
     Route: 048
  3. VIT D [Concomitant]
     Route: 048

REACTIONS (4)
  - Anaemia [Recovering/Resolving]
  - Haemoglobin decreased [Recovering/Resolving]
  - Blood glucose decreased [Unknown]
  - White blood cell count decreased [Unknown]
